FAERS Safety Report 6025215-0 (Version None)
Quarter: 2008Q4

REPORT INFORMATION
  Report Type: 
  Country: None (occurrence: None)
  Receive Date: 20081229
  Receipt Date: 20081229
  Transmission Date: 20090506
  Serious: No
  Sender: FDA-Public Use
  Company Number: None

PATIENT
  Age: 50 Year
  Sex: Female
  Weight: 65.7716 kg

DRUGS (2)
  1. FOSAMAX [Suspect]
     Indication: OSTEOPOROSIS PROPHYLAXIS
     Dosage: ONCE A WEEK PO
     Route: 048
     Dates: start: 20080101, end: 20080430
  2. ACTONEL [Suspect]
     Dosage: 35 MG ONCE A WEEK PO
     Route: 048
     Dates: start: 20081101, end: 20081231

REACTIONS (2)
  - JOINT RANGE OF MOTION DECREASED [None]
  - PAIN IN EXTREMITY [None]
